FAERS Safety Report 8494249-9 (Version None)
Quarter: 2012Q2

REPORT INFORMATION
  Report Type: 
  Country: None (occurrence: None)
  Receive Date: 20120627
  Receipt Date: 20120614
  Transmission Date: 20120825
  Serious: Yes (Other)
  Sender: FDA-Public Use
  Company Number: 2012SP013696

PATIENT
  Age: 50 Year
  Sex: Female

DRUGS (9)
  1. SAPHRIS [Suspect]
     Indication: AFFECTIVE DISORDER
     Dosage: 2 DF;QD
     Dates: start: 20120215
  2. LITHIUM CARBONATE [Concomitant]
  3. CITALOPRAM HYDROBROMIDE [Concomitant]
  4. VITAMIN D [Concomitant]
  5. OLANZAPINE [Concomitant]
  6. COGENTIN [Concomitant]
  7. LEVOTHYROXINE SODIUM [Concomitant]
  8. METFORMIN HYDROCHLORIDE [Concomitant]
  9. NEXIUM [Concomitant]

REACTIONS (2)
  - TREMOR [None]
  - HYPOAESTHESIA [None]
